FAERS Safety Report 22143676 (Version 1)
Quarter: 2023Q1

REPORT INFORMATION
  Report Type: Spontaneous
  Country: AU (occurrence: AU)
  Receive Date: 20230327
  Receipt Date: 20230327
  Transmission Date: 20230418
  Serious: Yes (Hospitalization, Other)
  Sender: FDA-Public Use
  Company Number: AU-LUNDBECK-DKLU3059684

PATIENT
  Sex: Male

DRUGS (3)
  1. ESCITALOPRAM OXALATE [Suspect]
     Active Substance: ESCITALOPRAM OXALATE
     Indication: Product used for unknown indication
  2. MIRTAZAPINE [Suspect]
     Active Substance: MIRTAZAPINE
     Indication: Product used for unknown indication
  3. ENTYVIO [Suspect]
     Active Substance: VEDOLIZUMAB
     Indication: Colitis ulcerative
     Dosage: 300 MG
     Route: 042

REACTIONS (6)
  - Colitis ulcerative [Not Recovered/Not Resolved]
  - Blood sodium decreased [Unknown]
  - Seizure [Unknown]
  - Serotonin syndrome [Unknown]
  - Amnesia [Unknown]
  - Disorientation [Unknown]
